FAERS Safety Report 8615214-4 (Version None)
Quarter: 2012Q3

REPORT INFORMATION
  Report Type: 
  Country: None (occurrence: None)
  Receive Date: 20120823
  Receipt Date: 20120730
  Transmission Date: 20120928
  Serious: No
  Sender: FDA-Public Use
  Company Number: US-009507513-1207USA005385

PATIENT

DRUGS (5)
  1. COUMADIN [Concomitant]
  2. LIPIRA [Concomitant]
  3. FOSINOPRIL SODIUM [Concomitant]
  4. METOPROLOL TARTRATE [Concomitant]
  5. JANUMET [Suspect]
     Dosage: 50/500
     Route: 048
     Dates: start: 20110810, end: 20120713

REACTIONS (1)
  - LIPASE INCREASED [None]
